FAERS Safety Report 16281893 (Version 2)
Quarter: 2019Q2

REPORT INFORMATION
  Report Type: Spontaneous
  Country: US (occurrence: US)
  Receive Date: 20190507
  Receipt Date: 20190516
  Transmission Date: 20190711
  Serious: No
  Sender: FDA-Public Use
  Company Number: US-BAYER-2019-090704

PATIENT
  Sex: Male

DRUGS (1)
  1. ALEVE BACK AND MUSCLE PAIN [Suspect]
     Active Substance: NAPROXEN SODIUM
     Dosage: 1 DF
     Route: 048

REACTIONS (3)
  - Product packaging quantity issue [None]
  - Abdominal pain upper [Recovering/Resolving]
  - Suspected product contamination [None]

NARRATIVE: CASE EVENT DATE: 20190506
